FAERS Safety Report 4524159-0 (Version None)
Quarter: 2004Q4

REPORT INFORMATION
  Report Type: 
  Country: None (occurrence: None)
  Receive Date: 20041209
  Receipt Date: 20041126
  Transmission Date: 20050328
  Serious: Yes (Hospitalization)
  Sender: FDA-Public Use
  Company Number: 2004AP05873

PATIENT
  Age: 66 Year
  Sex: Female

DRUGS (10)
  1. NOLVADEX [Suspect]
     Indication: BREAST CANCER
     Dosage: 20 MG DAILY PO
     Route: 048
     Dates: start: 20000221, end: 20041108
  2. XELODA [Suspect]
     Dosage: 2400 MG DAILY PO
     Route: 048
     Dates: start: 20040607, end: 20041108
  3. HYSRON [Suspect]
     Dosage: 800 MG DAILY PO
     Route: 048
     Dates: start: 20000221, end: 20041108
  4. METHOTREXATE [Suspect]
     Dosage: 50 MG DAILY
     Dates: start: 20030114
  5. ADRIACIN [Concomitant]
  6. FLUOROURACIL [Concomitant]
  7. ENDOXAN [Concomitant]
  8. FURTULON [Concomitant]
  9. TAXOL [Concomitant]
  10. HERCEPTIN [Concomitant]

REACTIONS (2)
  - INTERSTITIAL LUNG DISEASE [None]
  - LYMPHOCYTE STIMULATION TEST POSITIVE [None]
